FAERS Safety Report 8784735 (Version 4)
Quarter: 2013Q1

REPORT INFORMATION
  Report Type: Spontaneous
  Country: US (occurrence: US)
  Receive Date: 20120914
  Receipt Date: 20130222
  Transmission Date: 20140127
  Serious: Yes (Disabling)
  Sender: FDA-Public Use
  Company Number: US-ASTRAZENECA-2010SE58454

PATIENT
  Age: 80 Year
  Sex: Female

DRUGS (1)
  1. CRESTOR [Suspect]
     Route: 048

REACTIONS (10)
  - Blindness [Unknown]
  - Back pain [Unknown]
  - Eye disorder [Unknown]
  - Hearing impaired [Unknown]
  - Hypertension [Unknown]
  - Blood pressure fluctuation [Unknown]
  - Visual impairment [Unknown]
  - Stress [Unknown]
  - Musculoskeletal pain [Unknown]
  - Pain in extremity [Unknown]
